FAERS Safety Report 24316703 (Version 1)
Quarter: 2024Q3

REPORT INFORMATION
  Report Type: Spontaneous
  Country: DE (occurrence: DE)
  Receive Date: 20240913
  Receipt Date: 20240913
  Transmission Date: 20241016
  Serious: Yes (Death, Life-Threatening, Hospitalization, Other)
  Sender: CELLTRION
  Company Number: DE-CELLTRION INC.-2023DE020831

PATIENT

DRUGS (3)
  1. RITUXIMAB [Suspect]
     Active Substance: RITUXIMAB
     Indication: Neuromyelitis optica spectrum disorder
     Dosage: 375 MG/M2
     Route: 042
     Dates: start: 20210202, end: 20210202
  2. RITUXIMAB [Suspect]
     Active Substance: RITUXIMAB
     Dosage: UNK
  3. SATRALIZUMAB [Suspect]
     Active Substance: SATRALIZUMAB
     Indication: Neuromyelitis optica spectrum disorder
     Dosage: 120 MILLIGRAM, MONTHLY (DOSAGE FORM: PRE-FILLED SYRINGE)
     Route: 058
     Dates: start: 202202, end: 202310

REACTIONS (3)
  - Pneumonia [Fatal]
  - Progressive multifocal leukoencephalopathy [Fatal]
  - Off label use [Fatal]

NARRATIVE: CASE EVENT DATE: 20230901
